FAERS Safety Report 24738204 (Version 1)
Quarter: 2024Q4

REPORT INFORMATION
  Report Type: Other
  Country: AU (occurrence: AU)
  Receive Date: 20241216
  Receipt Date: 20241216
  Transmission Date: 20250114
  Serious: Yes (Hospitalization)
  Sender: B BRAUN
  Company Number: AU-B.Braun Medical Inc.-2167160

PATIENT
  Age: 63 Year
  Sex: Male

DRUGS (2)
  1. MEROPENEM [Suspect]
     Active Substance: MEROPENEM
     Indication: Cellulitis
  2. VANCOMYCIN [Suspect]
     Active Substance: VANCOMYCIN

REACTIONS (3)
  - Drug reaction with eosinophilia and systemic symptoms [Unknown]
  - Periorbital oedema [Unknown]
  - Hepatitis [Unknown]
